FAERS Safety Report 9161555 (Version 2)
Quarter: 2013Q1

REPORT INFORMATION
  Report Type: Spontaneous
  Country: CA (occurrence: CA)
  Receive Date: 20130313
  Receipt Date: 20130318
  Transmission Date: 20140127
  Serious: Yes (Hospitalization)
  Sender: FDA-Public Use
  Company Number: CA-BAXTER-2013BAX008429

PATIENT
  Sex: Male

DRUGS (6)
  1. DIANEAL PD4 SOLUTION WITH 1.5% DEXTROSE AND 2.5 MEQ/L CALCIUM [Suspect]
     Indication: RENAL FAILURE
     Dosage: 1 BAG
     Route: 033
  2. DIANEAL PD4 SOLUTION WITH 1.5% DEXTROSE AND 2.5 MEQ/L CALCIUM [Suspect]
     Indication: PERITONEAL DIALYSIS
  3. DIANEAL PD4 SOLUTION WITH 2.5% DEXTROSE AND 2.5 MEQ/L CALCIUM [Suspect]
     Indication: RENAL FAILURE
     Dosage: 1 BAG
     Route: 033
  4. DIANEAL PD4 SOLUTION WITH 2.5% DEXTROSE AND 2.5 MEQ/L CALCIUM [Suspect]
     Indication: PERITONEAL DIALYSIS
  5. EXTRANEAL [Suspect]
     Indication: RENAL FAILURE
     Dosage: 1 BAG
     Route: 033
  6. EXTRANEAL [Suspect]
     Indication: PERITONEAL DIALYSIS

REACTIONS (3)
  - Cardiac failure [Unknown]
  - Post procedural complication [Unknown]
  - Asthenia [Unknown]
